FAERS Safety Report 20848010 (Version 2)
Quarter: 2022Q2

REPORT INFORMATION
  Report Type: Spontaneous
  Country: CA (occurrence: CA)
  Receive Date: 20220519
  Receipt Date: 20220601
  Transmission Date: 20220721
  Serious: Yes (Other)
  Sender: FDA-Public Use
  Company Number: CA-TEVA-2022-CA-2037110

PATIENT
  Age: 60 Year
  Sex: Male

DRUGS (10)
  1. HYDROXYZINE [Suspect]
     Active Substance: HYDROXYZINE HYDROCHLORIDE
     Indication: Neuropathic pruritus
     Dosage: THREE TIMES A DAY
     Route: 065
  2. MIRTAZAPINE [Suspect]
     Active Substance: MIRTAZAPINE
     Indication: Neuropathic pruritus
     Route: 065
  3. PREGABALIN [Suspect]
     Active Substance: PREGABALIN
     Indication: Neuropathic pruritus
     Dosage: 100 MILLIGRAM DAILY;
     Route: 065
  4. VENLAFAXINE [Suspect]
     Active Substance: VENLAFAXINE HYDROCHLORIDE
     Indication: Neuropathic pruritus
     Dosage: 150 MILLIGRAM DAILY;
     Route: 065
  5. MENTHOL [Suspect]
     Active Substance: MENTHOL
     Indication: Neuropathic pruritus
     Route: 061
  6. CAMPHOR [Suspect]
     Active Substance: CAMPHOR
     Indication: Neuropathic pruritus
     Route: 061
  7. CAPSAICIN [Suspect]
     Active Substance: CAPSAICIN
     Indication: Neuropathic pruritus
     Route: 061
  8. NORTRIPTYLINE [Suspect]
     Active Substance: NORTRIPTYLINE
     Indication: Neuropathic pruritus
     Route: 065
  9. NABIXIMOLS [Suspect]
     Active Substance: NABIXIMOLS
     Indication: Neuropathic pruritus
     Dosage: 2.43MG THC/CBD 2.75MG
     Route: 048
  10. NABIXIMOLS [Suspect]
     Active Substance: NABIXIMOLS
     Dosage: 2 DOSAGE FORMS DAILY; THE DOSE WAS INCREASED TO ONE CAPSULE TWICE DAILY
     Route: 048

REACTIONS (3)
  - Anticholinergic syndrome [Unknown]
  - Sedation [Unknown]
  - Drug ineffective [Unknown]
